FAERS Safety Report 9273081 (Version 1)
Quarter: 2013Q2

REPORT INFORMATION
  Report Type: Spontaneous
  Country: GB (occurrence: GB)
  Receive Date: 20130506
  Receipt Date: 20130506
  Transmission Date: 20140414
  Serious: Yes (Death)
  Sender: FDA-Public Use
  Company Number: GB-BAYER-2013-052524

PATIENT
  Age: 75 Year
  Sex: Male
  Weight: 87 kg

DRUGS (11)
  1. ACETYLSALICYLIC ACID [Suspect]
  2. NOVOMIX [INSULIN ASPART] [Suspect]
     Dosage: 34 IU, QD
     Route: 065
  3. BUSCOPAN [Concomitant]
     Dosage: 10 MG, UNK
  4. CEFALEXIN [Concomitant]
     Dosage: 250 MG, UNK
  5. DIGOXIN [Concomitant]
     Dosage: 125 ?G, UNK
     Dates: start: 20130223
  6. DIGOXIN [Concomitant]
     Dosage: 250 ?G, UNK
  7. DILTIAZEM [Concomitant]
     Dosage: 360 MG, UNK
  8. FLUCLOXACILLIN [Concomitant]
     Dosage: 500 MG, UNK
  9. METRONIDAZOLE [Concomitant]
     Dosage: 400 MG, UNK
  10. MIRTAZAPINE [Concomitant]
     Dosage: 15 MG, UNK
  11. PEPPERMINT OIL [Concomitant]
     Dosage: .2 ML, UNK
     Route: 048

REACTIONS (2)
  - Lower respiratory tract infection [Fatal]
  - Blood glucose increased [Unknown]
